FAERS Safety Report 18478065 (Version 1)
Quarter: 2020Q4

REPORT INFORMATION
  Report Type: Report from Study
  Country: CA (occurrence: CA)
  Receive Date: 20201108
  Receipt Date: 20201108
  Transmission Date: 20210114
  Serious: Yes (Life-Threatening, Hospitalization)
  Sender: FDA-Public Use
  Company Number: CA-ROCHE-2707315

PATIENT
  Age: 69 Year

DRUGS (6)
  1. COBIMETINIB. [Suspect]
     Active Substance: COBIMETINIB
     Indication: NEOPLASM
  2. VEMURAFENIB. [Suspect]
     Active Substance: VEMURAFENIB
     Indication: NON-HODGKIN^S LYMPHOMA
     Route: 048
     Dates: start: 20200922
  3. VEMURAFENIB. [Suspect]
     Active Substance: VEMURAFENIB
     Indication: NEOPLASM
  4. VEMURAFENIB. [Suspect]
     Active Substance: VEMURAFENIB
     Indication: PLASMA CELL MYELOMA
  5. COBIMETINIB. [Suspect]
     Active Substance: COBIMETINIB
     Indication: NON-HODGKIN^S LYMPHOMA
     Dosage: 60 MG ORALLY ONCE DAILY FOR 21 DAYS, FOLLOWED BY 7 DAYS OF REST
     Route: 048
     Dates: start: 20200922
  6. COBIMETINIB. [Suspect]
     Active Substance: COBIMETINIB
     Indication: PLASMA CELL MYELOMA

REACTIONS (3)
  - Hepatotoxicity [Unknown]
  - Dyspnoea [Unknown]
  - Cardiac failure [Unknown]

NARRATIVE: CASE EVENT DATE: 20200928
